FAERS Safety Report 7458597-3 (Version None)
Quarter: 2011Q2

REPORT INFORMATION
  Report Type: 
  Country: None (occurrence: None)
  Receive Date: 20110503
  Receipt Date: 20110503
  Transmission Date: 20111010
  Serious: Yes (Death, Hospitalization)
  Sender: FDA-Public Use
  Company Number: None

PATIENT
  Sex: Female
  Weight: 53.3 kg

DRUGS (2)
  1. FLUDARABINE PHOSPHATE [Suspect]
     Dosage: 148.5 MG
     Dates: end: 20110108
  2. RITUXIMAB (MOAB C2B8 ANTI CD20, CHIMERIC) [Suspect]
     Dosage: 609.8 MG
     Dates: end: 20110104

REACTIONS (3)
  - COOMBS POSITIVE HAEMOLYTIC ANAEMIA [None]
  - SPLENIC INFARCTION [None]
  - BODY TEMPERATURE FLUCTUATION [None]
